FAERS Safety Report 10047018 (Version 1)
Quarter: 2014Q1

REPORT INFORMATION
  Report Type: Spontaneous
  Country: US (occurrence: US)
  Receive Date: 20140331
  Receipt Date: 20140331
  Transmission Date: 20141002
  Serious: Yes (Other)
  Sender: FDA-Public Use
  Company Number: US-BEH-2014041520

PATIENT
  Age: 33 Year
  Sex: Female

DRUGS (2)
  1. STIMATE [Suspect]
     Dosage: ??-???-2005
  2. HUMATE-P [Suspect]

REACTIONS (1)
  - Hip surgery [Unknown]
